FAERS Safety Report 24094029 (Version 2)
Quarter: 2024Q3

REPORT INFORMATION
  Report Type: Spontaneous
  Country: FR (occurrence: FR)
  Receive Date: 20240716
  Receipt Date: 20240807
  Transmission Date: 20241016
  Serious: Yes (Other)
  Sender: CHEPLAPHARM
  Company Number: None

PATIENT
  Age: 89 Year
  Sex: Male
  Weight: 85 kg

DRUGS (14)
  1. HYDROXYUREA [Suspect]
     Active Substance: HYDROXYUREA
     Indication: Polycythaemia vera
     Route: 048
     Dates: start: 2015, end: 202209
  2. HYDROXYUREA [Suspect]
     Active Substance: HYDROXYUREA
     Indication: Polycythaemia vera
     Dosage: 1 CAPSULE PER WEEK
     Route: 048
     Dates: start: 202401
  3. RUXOLITINIB [Suspect]
     Active Substance: RUXOLITINIB
     Indication: Polycythaemia vera
     Dosage: DAILY DOSE: 20 MILLIGRAM
     Route: 048
     Dates: start: 202212, end: 202307
  4. RUXOLITINIB [Suspect]
     Active Substance: RUXOLITINIB
     Indication: Polycythaemia vera
     Dosage: DAILY DOSE: 10 MILLIGRAM
     Route: 048
     Dates: start: 202307
  5. ASPIRIN [Concomitant]
     Active Substance: ASPIRIN
     Indication: Myocardial ischaemia
     Dosage: 1.0.0?DAILY DOSE: 1 DOSAGE FORM
     Route: 048
  6. ROSUVASTATIN [Concomitant]
     Active Substance: ROSUVASTATIN\ROSUVASTATIN CALCIUM
     Indication: Myocardial ischaemia
     Dosage: 4 X 5MG TABLETS PER WEEK
     Route: 048
  7. RAMIPRIL [Concomitant]
     Active Substance: RAMIPRIL
     Indication: Hypertension
     Dosage: 0.0.1?5 MG?DAILY DOSE: 1 DOSAGE FORM
     Route: 048
  8. LUCENTIS [Concomitant]
     Active Substance: RANIBIZUMAB
     Indication: Age-related macular degeneration
     Dosage: STRENGTH: 10 MG/ML
     Route: 031
  9. DOLIPRANE [Concomitant]
     Active Substance: ACETAMINOPHEN
     Indication: Pain
     Dosage: 1.1.1 IF NECESSARY; TID?DAILY DOSE: 3 DOSAGE FORM
     Route: 048
  10. SOTALOL HYDROCHLORIDE [Concomitant]
     Active Substance: SOTALOL HYDROCHLORIDE
     Indication: Myocardial ischaemia
     Dosage: 1.0.1?80 MG?DAILY DOSE: 2 DOSAGE FORM
     Route: 048
  11. MONOOX [Concomitant]
     Indication: Age-related macular degeneration
     Dosage: STRENGTH: 1.5 MG/0.5 ML; EYE DROPS SOLUTION IN SINGLE-DOSE CONTAINER
     Route: 047
  12. HYALURONATE SODIUM [Concomitant]
     Active Substance: HYALURONATE SODIUM
     Indication: Age-related macular degeneration
     Route: 047
  13. ELIQUIS [Concomitant]
     Active Substance: APIXABAN
     Indication: Pulmonary embolism
     Dosage: 1.0.1?5MG?DAILY DOSE: 2 DOSAGE FORM
     Route: 048
  14. AMLODIPINE BESYLATE [Concomitant]
     Active Substance: AMLODIPINE BESYLATE
     Indication: Hypertension
     Dosage: 0.0.1?DAILY DOSE: 1 DOSAGE FORM
     Route: 048

REACTIONS (2)
  - Cutaneous T-cell lymphoma [Recovering/Resolving]
  - Basal cell carcinoma [Recovering/Resolving]

NARRATIVE: CASE EVENT DATE: 20240402
